FAERS Safety Report 24559118 (Version 8)
Quarter: 2025Q1

REPORT INFORMATION
  Report Type: Report from Study
  Country: US (occurrence: US)
  Receive Date: 20241029
  Receipt Date: 20250317
  Transmission Date: 20250408
  Serious: Yes (Other)
  Sender: ACADIA PHARMACEUTICALS
  Company Number: US-ACADIA PHARMACEUTICALS INC.-ACA-2024-TRF-006402

PATIENT
  Age: 26 Year
  Sex: Female

DRUGS (5)
  1. DAYBUE [Suspect]
     Active Substance: TROFINETIDE
     Indication: Rett syndrome
     Dosage: 70 MILLILITER, QD (50 ML IN THE MORNING AND 20ML IN THE EVENING)
     Route: 048
  2. DAYBUE [Suspect]
     Active Substance: TROFINETIDE
     Dosage: 75 MILLILITER, QD (50 ML IN THE MORNING AND 25ML IN THE EVENING)
     Route: 048
  3. DAYBUE [Suspect]
     Active Substance: TROFINETIDE
     Dosage: 70 MILLILITER, BID (40 ML EVERY MORNING, 20 ML EVERY AFTERNOON, AND 10 ML EVERY EVENING)
     Route: 048
  4. DAYBUE [Suspect]
     Active Substance: TROFINETIDE
     Dosage: 85 MILLILITER, QD (60 ML IN THE MORNING/25ML IN THE EVENING)
     Route: 048
  5. DAYBUE [Suspect]
     Active Substance: TROFINETIDE
     Route: 048

REACTIONS (13)
  - Seizure [Recovering/Resolving]
  - Aggression [Not Recovered/Not Resolved]
  - Skin disorder [Not Recovered/Not Resolved]
  - Faeces soft [Not Recovered/Not Resolved]
  - Urinary tract infection [Not Recovered/Not Resolved]
  - Behaviour disorder [Not Recovered/Not Resolved]
  - Thirst [Not Recovered/Not Resolved]
  - Ill-defined disorder [Not Recovered/Not Resolved]
  - Vagal nerve stimulator implantation [Not Recovered/Not Resolved]
  - Diarrhoea [Not Recovered/Not Resolved]
  - Weight decreased [Not Recovered/Not Resolved]
  - Underdose [Not Recovered/Not Resolved]
  - Intentional dose omission [Not Recovered/Not Resolved]

NARRATIVE: CASE EVENT DATE: 20241001
